FAERS Safety Report 25050591 (Version 1)
Quarter: 2025Q1

REPORT INFORMATION
  Report Type: Spontaneous
  Country: CA (occurrence: CA)
  Receive Date: 20250307
  Receipt Date: 20250307
  Transmission Date: 20250409
  Serious: Yes (Other)
  Sender: Kenvue
  Company Number: CA-KENVUE-20190240600

PATIENT

DRUGS (2)
  1. TYLENOL [Suspect]
     Active Substance: ACETAMINOPHEN
     Indication: Product used for unknown indication
     Route: 045
     Dates: start: 20040829
  2. DIPHENHYDRAMINE HYDROCHLORIDE [Suspect]
     Active Substance: DIPHENHYDRAMINE HYDROCHLORIDE
     Indication: Product used for unknown indication
     Route: 048
     Dates: start: 20040829

REACTIONS (3)
  - Ataxia [Unknown]
  - Somnolence [Unknown]
  - Speech disorder [Unknown]

NARRATIVE: CASE EVENT DATE: 20040829
